FAERS Safety Report 7728163-0 (Version None)
Quarter: 2011Q3

REPORT INFORMATION
  Report Type: 
  Country: None (occurrence: None)
  Receive Date: 20110905
  Receipt Date: 20110826
  Transmission Date: 20111222
  Serious: Yes (Other)
  Sender: FDA-Public Use
  Company Number: US-AMGEN-USASP2011041813

PATIENT
  Age: 48 Year
  Sex: Female

DRUGS (1)
  1. ENBREL [Suspect]
     Indication: RHEUMATOID ARTHRITIS
     Dosage: 50 MG, QWK
     Dates: start: 20110805

REACTIONS (6)
  - PAIN [None]
  - RASH MACULAR [None]
  - SPINAL CORD DISORDER [None]
  - EYE INFECTION [None]
  - VISUAL IMPAIRMENT [None]
  - DRY EYE [None]
